FAERS Safety Report 16045891 (Version 14)
Quarter: 2020Q4

REPORT INFORMATION
  Report Type: Report from Study
  Country: US (occurrence: US)
  Receive Date: 20190307
  Receipt Date: 20201124
  Transmission Date: 20210113
  Serious: Yes (Hospitalization, Other)
  Sender: FDA-Public Use
  Company Number: US-SA-2019SA056913

PATIENT

DRUGS (4)
  1. ALEMTUZUMAB [Suspect]
     Active Substance: ALEMTUZUMAB
     Indication: MULTIPLE SCLEROSIS
     Dosage: 12 MG, QD
     Route: 041
     Dates: start: 20190225, end: 20190225
  2. ALEMTUZUMAB [Suspect]
     Active Substance: ALEMTUZUMAB
     Dosage: 12 MG, QD
     Route: 041
     Dates: start: 20190312, end: 20190315
  3. CYCLOBENZAPRINE. [Suspect]
     Active Substance: CYCLOBENZAPRINE
     Dosage: UNK UNK UNK
     Route: 065
     Dates: start: 202005
  4. GABAPENTIN. [Suspect]
     Active Substance: GABAPENTIN
     Dosage: UNK UNK UNK
     Route: 065
     Dates: start: 202005

REACTIONS (27)
  - Pallor [Unknown]
  - Confusional state [Unknown]
  - Tachycardia [Unknown]
  - Blood lactic acid increased [Unknown]
  - Tremor [Recovered/Resolved]
  - Sinus tachycardia [Unknown]
  - Speech disorder [Not Recovered/Not Resolved]
  - Asthenia [Recovering/Resolving]
  - Muscle spasms [Recovering/Resolving]
  - Rhinorrhoea [Recovered/Resolved]
  - Illness [Unknown]
  - Dysphagia [Not Recovered/Not Resolved]
  - Feeling abnormal [Unknown]
  - Somnolence [Recovering/Resolving]
  - Urinary incontinence [Recovering/Resolving]
  - Vomiting [Not Recovered/Not Resolved]
  - Visual impairment [Unknown]
  - Exposure to SARS-CoV-2 [Not Recovered/Not Resolved]
  - Cough [Not Recovered/Not Resolved]
  - Unevaluable event [Not Recovered/Not Resolved]
  - Vital functions abnormal [Unknown]
  - Somnolence [Unknown]
  - Fatigue [Not Recovered/Not Resolved]
  - Viral infection [Recovered/Resolved]
  - Pyrexia [Unknown]
  - Aspiration [Not Recovered/Not Resolved]
  - Disease progression [Recovering/Resolving]

NARRATIVE: CASE EVENT DATE: 201902
